FAERS Safety Report 9238397 (Version 2)
Quarter: 2013Q2

REPORT INFORMATION
  Report Type: Spontaneous
  Country: US (occurrence: None)
  Receive Date: 20130416
  Receipt Date: 20130422
  Transmission Date: 20140414
  Serious: Yes (Other)
  Sender: FDA-Public Use
  Company Number: ADR-2013-00635

PATIENT
  Age: 29 Year
  Sex: Male

DRUGS (1)
  1. BACLOFEN INTRATHECAL [Suspect]
     Indication: MUSCLE SPASTICITY

REACTIONS (7)
  - Paraesthesia [None]
  - Sensation of heaviness [None]
  - Feeling cold [None]
  - Sensory loss [None]
  - Neuralgia [None]
  - Migraine [None]
  - Hypoaesthesia [None]
